FAERS Safety Report 6169561-9 (Version None)
Quarter: 2009Q2

REPORT INFORMATION
  Report Type: 
  Country: None (occurrence: None)
  Receive Date: 20090428
  Receipt Date: 20090420
  Transmission Date: 20091009
  Serious: Yes (Hospitalization)
  Sender: FDA-Public Use
  Company Number: US-KINGPHARMUSA00001-K200900464

PATIENT
  Age: 79 Year
  Sex: Male

DRUGS (11)
  1. ALTACE [Suspect]
     Indication: HYPERTENSION
     Dosage: UNK
     Route: 048
     Dates: start: 20010101, end: 20090120
  2. ALTACE [Suspect]
     Dosage: UNK
     Route: 048
     Dates: start: 20090101
  3. GLUCOPHAGE [Suspect]
     Indication: TYPE 2 DIABETES MELLITUS
     Dosage: 15 MG, QD
     Route: 048
     Dates: start: 20010101, end: 20090120
  4. GLUCOPHAGE [Suspect]
     Dosage: UNK
     Route: 048
     Dates: start: 20090101
  5. AMLODIPINE BESYLATE [Suspect]
     Indication: HYPERTENSION
     Dosage: UNK
     Route: 048
     Dates: start: 20010101, end: 20081224
  6. AMLODIPINE BESYLATE [Suspect]
     Dosage: UNK
     Route: 048
     Dates: start: 20090101
  7. FLECAINIDE ACETATE [Concomitant]
     Dosage: 200 MG, UNK
     Route: 048
     Dates: start: 20010101
  8. KARDEGIC                           /00002703/ [Concomitant]
     Dosage: UNK, QD
     Dates: start: 20010101
  9. RILMENIDINE [Concomitant]
     Dosage: 2 MG, UNK
     Route: 048
     Dates: start: 20010101
  10. LOSARTAN POSTASSIUM [Concomitant]
     Dosage: 50 MG, UNK
     Route: 048
     Dates: start: 20010101
  11. FINASTERIDE [Concomitant]
     Dosage: UNK
     Route: 048
     Dates: start: 20010101

REACTIONS (3)
  - DRY EYE [None]
  - DRY MOUTH [None]
  - PRURITUS GENERALISED [None]
